FAERS Safety Report 9912839 (Version 2)
Quarter: 2014Q2

REPORT INFORMATION
  Report Type: Spontaneous
  Country: US (occurrence: US)
  Receive Date: 20140220
  Receipt Date: 20140401
  Transmission Date: 20141212
  Serious: No
  Sender: FDA-Public Use
  Company Number: US-PFIZER INC-2014047323

PATIENT
  Sex: Female

DRUGS (2)
  1. ARTHROTEC [Suspect]
     Dosage: UNK
  2. LYRICA [Suspect]
     Dosage: UNK

REACTIONS (2)
  - Nasopharyngitis [Unknown]
  - Pain [Unknown]
